FAERS Safety Report 20119877 (Version 2)
Quarter: 2021Q4

REPORT INFORMATION
  Report Type: Report from Study
  Country: BD (occurrence: BD)
  Receive Date: 20211126
  Receipt Date: 20211202
  Transmission Date: 20220304
  Serious: Yes (Death, Hospitalization)
  Sender: FDA-Public Use
  Company Number: BD-NOVARTISPH-NVSC2021BD270526

PATIENT
  Age: 55 Year
  Sex: Female

DRUGS (1)
  1. COSENTYX [Suspect]
     Active Substance: SECUKINUMAB
     Indication: COVID-19
     Dosage: 150 MG, ONCE/SINGLE (SINGLE DOSE SUBCUTANEOUSLY WS GIVEN)
     Route: 058
     Dates: start: 202107

REACTIONS (2)
  - Respiratory failure [Fatal]
  - Off label use [Unknown]

NARRATIVE: CASE EVENT DATE: 20210701
